FAERS Safety Report 9690708 (Version 1)
Quarter: 2013Q4

REPORT INFORMATION
  Report Type: Spontaneous
  Country: CA (occurrence: None)
  Receive Date: 20131113
  Receipt Date: 20131113
  Transmission Date: 20140711
  Serious: Yes (Life-Threatening, Other)
  Sender: FDA-Public Use
  Company Number: FK201304879

PATIENT
  Age: 38 Year
  Sex: Female
  Weight: 81.65 kg

DRUGS (2)
  1. DIPHENHYDRAMINE INJECTION (MANUFACTURER UNKNOWN (DIPHENHYDRAMINE HYDROCHLORIDE) (DIPHENHYDRAMINE HYDROCHLORIDE) [Suspect]
     Indication: PRODUCT USED FOR UNKNOWN INDICATION
     Dosage: 50MG, INTRAVENOUS (NOT OTHERWISE SPECIFIED)
     Route: 042
  2. ISOVUE MULTIPACK - 370 (IOPAMIDOL) [Suspect]
     Indication: PRODUCT USED FOR UNKNOWN INDICATION
     Route: 042

REACTIONS (6)
  - Dyspnoea [None]
  - Injection site pain [None]
  - Loss of consciousness [None]
  - Throat tightness [None]
  - Unresponsive to stimuli [None]
  - Urticaria [None]
